FAERS Safety Report 7480924-1 (Version None)
Quarter: 2011Q2

REPORT INFORMATION
  Report Type: 
  Country: None (occurrence: None)
  Receive Date: 20110506
  Receipt Date: 20110421
  Transmission Date: 20111010
  Serious: Yes (Hospitalization)
  Sender: FDA-Public Use
  Company Number: 031810

PATIENT
  Sex: Female

DRUGS (18)
  1. LANSOPRAZOLE [Concomitant]
  2. CARBOCISTEINE [Concomitant]
  3. ETODOLAC [Concomitant]
  4. ISONIAZID [Concomitant]
  5. LEUCOVORIN CALCIUM [Concomitant]
  6. CODEINE SULFATE [Concomitant]
  7. LAFITUDINE [Concomitant]
  8. AMBROXOL HYDROCHLORIDE [Concomitant]
  9. LOXOPROFEN SODIUM [Concomitant]
  10. DICLOFENAC SODIUM [Concomitant]
  11. RISEDRONATE SODIIUM [Concomitant]
  12. METHOTREXATE [Concomitant]
  13. CLARITHROMYCIN [Concomitant]
  14. CIMZIA [Suspect]
     Indication: RHEUMATOID ARTHRITIS
     Dosage: 200 MG 1X2 WEEKS, CDP870-41 STUDY:20 MG(WEEKS 0,2,4) SUBCUTANEOUS (100 MG 1X2 WEEKS, ^SEE IMAGE^
     Route: 058
     Dates: start: 20090928
  15. CIMZIA [Suspect]
     Indication: RHEUMATOID ARTHRITIS
     Dosage: 200 MG 1X2 WEEKS, CDP870-41 STUDY:20 MG(WEEKS 0,2,4) SUBCUTANEOUS (100 MG 1X2 WEEKS, ^SEE IMAGE^
     Route: 058
     Dates: end: 20100106
  16. CIMZIA [Suspect]
     Indication: RHEUMATOID ARTHRITIS
     Dosage: 200 MG 1X2 WEEKS, CDP870-41 STUDY:20 MG(WEEKS 0,2,4) SUBCUTANEOUS (100 MG 1X2 WEEKS, ^SEE IMAGE^
     Route: 058
     Dates: start: 20100120, end: 20110414
  17. KETOPROFEN [Concomitant]
  18. APRICOT KERNEL WATER [Concomitant]

REACTIONS (2)
  - ABDOMINAL PAIN UPPER [None]
  - BRONCHOPNEUMONIA [None]
